FAERS Safety Report 8758212 (Version 1)
Quarter: 2012Q4

REPORT INFORMATION
  Report Type: 
  Country: FR (occurrence: FR)
  Receive Date: 20120829
  Receipt Date: 20120829
  Transmission Date: 20130627
  Serious: Yes (Death)
  Sender: FDA-Public Use
  Company Number: PHHY2011FR117263

PATIENT

DRUGS (2)
  1. NEORAL [Suspect]
     Indication: RENAL TRANSPLANT
  2. CELLCEPT [Suspect]
     Indication: RENAL TRANSPLANT
     Dosage: 2 g, QD

REACTIONS (1)
  - Angiosarcoma [Fatal]
